FAERS Safety Report 8462184-8 (Version None)
Quarter: 2012Q2

REPORT INFORMATION
  Report Type: 
  Country: None (occurrence: None)
  Receive Date: 20120625
  Receipt Date: 20120618
  Transmission Date: 20120825
  Serious: Yes (Other)
  Sender: FDA-Public Use
  Company Number: PHHY2011SG92162

PATIENT
  Sex: Male

DRUGS (3)
  1. TASIGNA [Suspect]
     Indication: CHRONIC MYELOID LEUKAEMIA
     Dosage: 800 MG, DAILY
     Route: 048
     Dates: start: 20111010
  2. BETAMETHASONE DIPROPIONATE OINTMENT [Concomitant]
     Dosage: 0.05 %, UNK
     Dates: start: 20120611
  3. TASIGNA [Suspect]
     Dosage: 400 MG, DAILY
     Route: 048
     Dates: start: 20111128

REACTIONS (5)
  - JAUNDICE [None]
  - LIVER DISORDER [None]
  - CHROMATURIA [None]
  - SWELLING FACE [None]
  - BLOOD BILIRUBIN INCREASED [None]
